FAERS Safety Report 21283313 (Version 2)
Quarter: 2022Q3

REPORT INFORMATION
  Report Type: Report from Study
  Country: US (occurrence: US)
  Receive Date: 20220901
  Receipt Date: 20220914
  Transmission Date: 20221027
  Serious: Yes (Hospitalization, Other)
  Sender: FDA-Public Use
  Company Number: US-BRISTOL-MYERS SQUIBB COMPANY-2022-097337

PATIENT
  Age: 50 Year
  Sex: Male
  Weight: 75 kg

DRUGS (10)
  1. IPILIMUMAB [Suspect]
     Active Substance: IPILIMUMAB
     Indication: Colorectal cancer
     Dosage: RECEIVED ONLY ONE DOSE
     Route: 042
     Dates: start: 20220630, end: 20220630
  2. TRAMETINIB [Suspect]
     Active Substance: TRAMETINIB
     Indication: Colorectal cancer
     Dosage: MOST RECENT DOSE WAS ON 25-AUG-2022
     Route: 048
     Dates: start: 20220630, end: 20220825
  3. OXYCODONE [Concomitant]
     Active Substance: OXYCODONE
     Indication: Product used for unknown indication
     Route: 048
     Dates: start: 20220512
  4. OXYCODONE [Concomitant]
     Active Substance: OXYCODONE
     Route: 048
     Dates: start: 20220630
  5. DUCOSATE [Concomitant]
     Indication: Product used for unknown indication
     Route: 048
     Dates: start: 20201022
  6. BREZTRI INHALER [Concomitant]
     Indication: Product used for unknown indication
     Route: 055
     Dates: start: 20220407
  7. MIRALAX [Concomitant]
     Active Substance: POLYETHYLENE GLYCOL 3350
     Indication: Product used for unknown indication
     Route: 048
     Dates: start: 20220625
  8. SENNA [Concomitant]
     Active Substance: SENNA LEAF\SENNOSIDES\SENNOSIDES A AND B
     Indication: Product used for unknown indication
     Route: 048
     Dates: start: 20220625
  9. CLINDAMYCIN [Concomitant]
     Active Substance: CLINDAMYCIN
     Indication: Rash maculo-papular
     Dosage: 1DF=1
     Route: 061
     Dates: start: 20220715
  10. HYDROCORTISONE [Concomitant]
     Active Substance: HYDROCORTISONE
     Indication: Rash maculo-papular
     Dosage: 1DF=2.5
     Route: 061
     Dates: start: 20220715

REACTIONS (1)
  - Pneumonia [Recovered/Resolved with Sequelae]

NARRATIVE: CASE EVENT DATE: 20220825
